FAERS Safety Report 23190703 (Version 1)
Quarter: 2023Q4

REPORT INFORMATION
  Report Type: Spontaneous
  Country: US (occurrence: US)
  Receive Date: 20231116
  Receipt Date: 20231116
  Transmission Date: 20240109
  Serious: No
  Sender: FDA-Public Use
  Company Number: US-TARO PHARMACEUTICALS USA INC.-2023TAR00225

PATIENT

DRUGS (2)
  1. MUPIROCIN [Suspect]
     Active Substance: MUPIROCIN
     Indication: Injury
     Dosage: UNK, BID, TOPICALLY TO RIGHT KNEE
     Route: 061
     Dates: start: 202302
  2. MUPIROCIN [Suspect]
     Active Substance: MUPIROCIN
     Indication: Localised infection

REACTIONS (2)
  - Scab [Not Recovered/Not Resolved]
  - Off label use [Unknown]
